FAERS Safety Report 6381260-7 (Version None)
Quarter: 2009Q3

REPORT INFORMATION
  Report Type: 
  Country: None (occurrence: None)
  Receive Date: 20090923
  Receipt Date: 20090911
  Transmission Date: 20100115
  Serious: Yes (Hospitalization)
  Sender: FDA-Public Use
  Company Number: 2009-02183

PATIENT
  Age: 68 Year
  Sex: Female
  Weight: 57.6 kg

DRUGS (12)
  1. VELCADE [Suspect]
     Indication: MULTIPLE MYELOMA
     Dosage: 2.07 MG, INTRAVENOUS
     Route: 042
     Dates: start: 20090518, end: 20090528
  2. PREDONINE [Concomitant]
  3. ALKERAN [Concomitant]
  4. RABEPRAZOLE SODIUM [Concomitant]
  5. NOVAMIN (PROCHLORPERAZINE) [Concomitant]
  6. OXYCONTIN [Concomitant]
  7. LOXONIN (LOXOPROFEN SODIUM) [Concomitant]
  8. VALTREX [Concomitant]
  9. ISODINE (POVIDONE-IODINE) [Concomitant]
  10. SULFAMETHOXAZOLE AND TRIMETHOPRIM [Concomitant]
  11. ETODOLAC [Concomitant]
  12. MAG-LAX (MAGNESIUM HYDROXIDE, PARAFFIN LIQUID) [Concomitant]

REACTIONS (19)
  - ACIDOSIS [None]
  - BLOOD PRESSURE DECREASED [None]
  - CHILLS [None]
  - COAGULOPATHY [None]
  - CULTURE STOOL POSITIVE [None]
  - DISSEMINATED INTRAVASCULAR COAGULATION [None]
  - ENTEROCOLITIS [None]
  - INFLAMMATION [None]
  - PLATELET COUNT DECREASED [None]
  - PNEUMONIA [None]
  - PYREXIA [None]
  - RENAL IMPAIRMENT [None]
  - SHOCK [None]
  - STREPTOCOCCAL INFECTION [None]
  - TOXIC SKIN ERUPTION [None]
  - TUMOUR LYSIS SYNDROME [None]
  - URINE OUTPUT DECREASED [None]
  - VOMITING [None]
  - WEIGHT INCREASED [None]
